FAERS Safety Report 5698026-3 (Version None)
Quarter: 2008Q2

REPORT INFORMATION
  Report Type: 
  Country: None (occurrence: None)
  Receive Date: 20080408
  Receipt Date: 20080328
  Transmission Date: 20081010
  Serious: Yes (Other)
  Sender: FDA-Public Use
  Company Number: US-PFIZER INC-2007094134

PATIENT
  Sex: Male
  Weight: 81 kg

DRUGS (5)
  1. DETROL LA [Suspect]
     Indication: PROSTATOMEGALY
     Route: 048
     Dates: start: 20071101, end: 20071105
  2. DETROL LA [Suspect]
     Indication: URINARY TRACT DISORDER
  3. DETROL LA [Suspect]
     Indication: HYPERTONIC BLADDER
  4. TOPROL-XL [Concomitant]
  5. AVAPRO [Concomitant]

REACTIONS (1)
  - INTRAOCULAR PRESSURE INCREASED [None]
